FAERS Safety Report 12986622 (Version 1)
Quarter: 2016Q4

REPORT INFORMATION
  Report Type: Spontaneous
  Country: CA (occurrence: CA)
  Receive Date: 20161130
  Receipt Date: 20161130
  Transmission Date: 20170207
  Serious: Yes (Other)
  Sender: FDA-Public Use
  Company Number: CA-GLAXOSMITHKLINE-CA2016GSK176075

PATIENT
  Age: 54 Year
  Sex: Male

DRUGS (2)
  1. ALEVE [Suspect]
     Active Substance: NAPROXEN SODIUM
     Indication: PRODUCT USED FOR UNKNOWN INDICATION
     Dosage: UNK
  2. VOLTAREN [Suspect]
     Active Substance: DICLOFENAC SODIUM
     Indication: PRODUCT USED FOR UNKNOWN INDICATION
     Dosage: UNK
     Route: 061
     Dates: start: 201603, end: 2016

REACTIONS (10)
  - Altered state of consciousness [Not Recovered/Not Resolved]
  - Abdominal pain upper [Unknown]
  - Impaired work ability [Unknown]
  - Renal pain [Unknown]
  - Respiratory depression [Unknown]
  - Drug intolerance [Unknown]
  - Renal disorder [Unknown]
  - Anxiety [Unknown]
  - Disturbance in attention [Not Recovered/Not Resolved]
  - Contraindicated product administered [Unknown]

NARRATIVE: CASE EVENT DATE: 201603
